FAERS Safety Report 12779918 (Version 5)
Quarter: 2018Q4

REPORT INFORMATION
  Report Type: Spontaneous
  Country: US (occurrence: US)
  Receive Date: 20160926
  Receipt Date: 20181207
  Transmission Date: 20190204
  Serious: Yes (Hospitalization, Other)
  Sender: FDA-Public Use
  Company Number: US-PFIZER INC-2016447923

PATIENT
  Age: 70 Year
  Sex: Female
  Weight: 78.5 kg

DRUGS (1)
  1. CELECOXIB. [Suspect]
     Active Substance: CELECOXIB
     Indication: OSTEOARTHRITIS
     Dosage: 200 MG, 2X/DAY
     Route: 048

REACTIONS (4)
  - Enterocolitis haemorrhagic [Unknown]
  - Gastroenteritis [Recovered/Resolved]
  - Drug ineffective [Unknown]
  - Arthritis [Unknown]

NARRATIVE: CASE EVENT DATE: 201803
